FAERS Safety Report 17371250 (Version 1)
Quarter: 2020Q1

REPORT INFORMATION
  Report Type: Report from Study
  Country: US (occurrence: US)
  Receive Date: 20200205
  Receipt Date: 20200205
  Transmission Date: 20200409
  Serious: Yes (Hospitalization, Other)
  Sender: FDA-Public Use
  Company Number: NVSC2020US029628

PATIENT
  Age: 31 Year
  Sex: Female
  Weight: 54.3 kg

DRUGS (16)
  1. AZITHROMYCIN ANHYDROUS. [Concomitant]
     Active Substance: AZITHROMYCIN ANHYDROUS
     Indication: CYSTIC FIBROSIS LUNG
  2. CREON [Concomitant]
     Active Substance: PANCRELIPASE AMYLASE\PANCRELIPASE LIPASE\PANCRELIPASE PROTEASE
     Indication: PANCREATIC FAILURE
     Dosage: 3-5 TABLETS WITH MILK
     Route: 065
     Dates: start: 198901
  3. PEPCID [Concomitant]
     Active Substance: FAMOTIDINE
     Indication: PANCREATIC FAILURE
  4. ADVAIR HFA [Concomitant]
     Active Substance: FLUTICASONE PROPIONATE\SALMETEROL XINAFOATE
     Indication: ASTHMA
     Dosage: 2 DF, BID (2 PUFF)
     Route: 065
     Dates: start: 20161219
  5. ADVAIR HFA [Concomitant]
     Active Substance: FLUTICASONE PROPIONATE\SALMETEROL XINAFOATE
     Indication: CYSTIC FIBROSIS LUNG
  6. AZITHROMYCIN ANHYDROUS. [Concomitant]
     Active Substance: AZITHROMYCIN ANHYDROUS
     Indication: ANTIINFLAMMATORY THERAPY
     Dosage: 500 MG, QW3
     Route: 065
     Dates: start: 2012
  7. VITAMIN D [Concomitant]
     Active Substance: VITAMIN D NOS
     Indication: PANCREATIC FAILURE
     Dosage: 1 DF, QW
     Route: 065
     Dates: start: 198901
  8. INSULIN GLARGINE [Concomitant]
     Active Substance: INSULIN GLARGINE
     Indication: CYSTIC FIBROSIS RELATED DIABETES
     Dosage: UNK
     Route: 065
     Dates: start: 200306
  9. ALBUTEROL. [Concomitant]
     Active Substance: ALBUTEROL
     Indication: CYSTIC FIBROSIS LUNG
     Dosage: 2 DF (2 PUFF), PRN
     Route: 065
     Dates: start: 2013
  10. HUMALOG [Concomitant]
     Active Substance: INSULIN LISPRO
     Indication: CYSTIC FIBROSIS RELATED DIABETES
     Dosage: 50, TID
     Route: 058
     Dates: start: 2003
  11. SINGULAIR [Concomitant]
     Active Substance: MONTELUKAST SODIUM
     Indication: ASTHMA
     Dosage: 10 MG, QD
     Route: 048
     Dates: start: 20191023
  12. TOBRAMYCIN. [Suspect]
     Active Substance: TOBRAMYCIN
     Indication: INFLUENZA
     Dosage: 300 MG, BID
     Route: 065
     Dates: start: 20180808
  13. PULMOZYME [Concomitant]
     Active Substance: DORNASE ALFA
     Indication: CYSTIC FIBROSIS LUNG
     Dosage: 2.5 ML, BID
     Route: 065
     Dates: start: 2012
  14. PEPCID [Concomitant]
     Active Substance: FAMOTIDINE
     Indication: GASTROOESOPHAGEAL REFLUX DISEASE
     Dosage: 40 MG, TID
     Route: 048
     Dates: start: 200611
  15. ZOSYN [Concomitant]
     Active Substance: PIPERACILLIN SODIUM\TAZOBACTAM SODIUM
     Indication: PROPHYLAXIS
     Dosage: 3.375 MG, Q8H
     Route: 042
     Dates: start: 20200113, end: 20200117
  16. ADEK [Concomitant]
     Indication: PANCREATIC FAILURE
     Dosage: 1 DF, BID
     Route: 048
     Dates: start: 198901

REACTIONS (1)
  - Influenza [Recovered/Resolved]

NARRATIVE: CASE EVENT DATE: 20200113
